FAERS Safety Report 4443258-5 (Version None)
Quarter: 2004Q3

REPORT INFORMATION
  Report Type: 
  Country: None (occurrence: None)
  Receive Date: 20040728
  Receipt Date: 20040513
  Transmission Date: 20050211
  Serious: No
  Sender: FDA-Public Use
  Company Number: USA040567463

PATIENT
  Age: 4 Year
  Sex: Male
  Weight: 18 kg

DRUGS (2)
  1. STRATTERA [Suspect]
     Indication: ATTENTION DEFICIT/HYPERACTIVITY DISORDER
     Dosage: 43 MG DAY
     Dates: start: 20040401
  2. CLONIDINE HCL [Concomitant]

REACTIONS (3)
  - AGGRESSION [None]
  - PRESCRIBED OVERDOSE [None]
  - RETCHING [None]
